FAERS Safety Report 5677804-0 (Version None)
Quarter: 2008Q1

REPORT INFORMATION
  Report Type: 
  Country: None (occurrence: None)
  Receive Date: 20080318
  Receipt Date: 20080304
  Transmission Date: 20080703
  Serious: Yes (Hospitalization, Other)
  Sender: FDA-Public Use
  Company Number: 2007-03764

PATIENT
  Age: 57 Year
  Sex: Male
  Weight: 52 kg

DRUGS (16)
  1. VELCADE [Suspect]
     Indication: MULTIPLE MYELOMA
     Dosage: 2.00 MG, INTRAVENOUS; 1.50 MG, INTRAVENOUS; 2.00 MG
     Route: 042
     Dates: start: 20071009, end: 20071019
  2. VELCADE [Suspect]
     Indication: MULTIPLE MYELOMA
     Dosage: 2.00 MG, INTRAVENOUS; 1.50 MG, INTRAVENOUS; 2.00 MG
     Route: 042
     Dates: start: 20071101, end: 20071218
  3. VELCADE [Suspect]
     Indication: MULTIPLE MYELOMA
     Dosage: 2.00 MG, INTRAVENOUS; 1.50 MG, INTRAVENOUS; 2.00 MG
     Route: 042
     Dates: start: 20071218
  4. ACYCLOVIR [Concomitant]
  5. ALLOPURINOL [Concomitant]
  6. PETROLATUM OINTEMENT, CREAM [Concomitant]
  7. VIDARABINE (VIDARABINE) [Concomitant]
  8. ALPROSTADIL [Concomitant]
  9. ZOMETA [Concomitant]
  10. DEXAMETHASONE TAB [Concomitant]
  11. OMEPRAL (OMEPRAZOLE) [Concomitant]
  12. MUCOSTA (REBAMIPIDE [Concomitant]
  13. GAMIMUNE N 5% [Concomitant]
  14. NON PYRINE PREPARATION [Concomitant]
  15. LEVOFLOXACIN [Concomitant]
  16. CARBENIN (BETAMIPRON, PANIPENEM) [Concomitant]

REACTIONS (17)
  - BLOOD UREA INCREASED [None]
  - BONE MARROW FAILURE [None]
  - CONDITION AGGRAVATED [None]
  - DIARRHOEA [None]
  - DISEASE COMPLICATION [None]
  - FAECES DISCOLOURED [None]
  - GASTRITIS EROSIVE [None]
  - GASTRITIS HAEMORRHAGIC [None]
  - HAEMOGLOBIN DECREASED [None]
  - INFLAMMATION [None]
  - LUNG CONSOLIDATION [None]
  - MORAXELLA INFECTION [None]
  - PLEURAL EFFUSION [None]
  - PLEURISY [None]
  - PNEUMONIA STAPHYLOCOCCAL [None]
  - PYREXIA [None]
  - SPUTUM CULTURE POSITIVE [None]
